FAERS Safety Report 17132388 (Version 4)
Quarter: 2020Q3

REPORT INFORMATION
  Report Type: Spontaneous
  Country: US (occurrence: US)
  Receive Date: 20191210
  Receipt Date: 20200828
  Transmission Date: 20201102
  Serious: No
  Sender: FDA-Public Use
  Company Number: US-SUNOVION-2019SUN005322

PATIENT
  Age: 57 Year
  Sex: Male

DRUGS (2)
  1. LONHALA MAGNAIR [Suspect]
     Active Substance: GLYCOPYRROLATE
     Dosage: UNK
     Route: 055
  2. LONHALA MAGNAIR [Suspect]
     Active Substance: GLYCOPYRROLATE
     Dosage: 25 ?G, BID
     Route: 055

REACTIONS (4)
  - Wheezing [Unknown]
  - Feeling abnormal [Unknown]
  - Therapy interrupted [Unknown]
  - Dyspnoea [Unknown]
